FAERS Safety Report 10173595 (Version 1)
Quarter: 2014Q2

REPORT INFORMATION
  Report Type: Spontaneous
  Country: US (occurrence: None)
  Receive Date: 20140425
  Receipt Date: 20140425
  Transmission Date: 20141212
  Serious: No
  Sender: FDA-Public Use
  Company Number: AP356-00562-SPO-US

PATIENT
  Age: 49 Year
  Sex: Female
  Weight: 43.09 kg

DRUGS (1)
  1. BELVIQ [Suspect]
     Route: 048

REACTIONS (5)
  - Nightmare [None]
  - Insomnia [None]
  - Dizziness [None]
  - Headache [None]
  - Nausea [None]
